FAERS Safety Report 9142867 (Version 1)
Quarter: 2013Q1

REPORT INFORMATION
  Report Type: Spontaneous
  Country: US (occurrence: US)
  Receive Date: 20130306
  Receipt Date: 20130306
  Transmission Date: 20140127
  Serious: Yes (Other)
  Sender: FDA-Public Use
  Company Number: US-ENDO PHARMACEUTICALS INC.-OPER20100057

PATIENT
  Age: 30 Year
  Sex: Male

DRUGS (1)
  1. OPANA ER [Suspect]
     Indication: INTENTIONAL DRUG MISUSE
     Dosage: UNK
     Route: 048

REACTIONS (1)
  - Intentional drug misuse [Unknown]
